FAERS Safety Report 19529761 (Version 8)
Quarter: 2022Q3

REPORT INFORMATION
  Report Type: Report from Study
  Country: CA (occurrence: CA)
  Receive Date: 20210713
  Receipt Date: 20220808
  Transmission Date: 20221026
  Serious: Yes (Hospitalization, Other)
  Sender: FDA-Public Use
  Company Number: CA-TAKEDA-2020TUS011337

PATIENT
  Age: 72 Year
  Sex: Female

DRUGS (9)
  1. VEDOLIZUMAB [Suspect]
     Active Substance: VEDOLIZUMAB
     Indication: Crohn^s disease
     Dosage: 300 MILLIGRAM
     Route: 042
     Dates: start: 20190913
  2. VEDOLIZUMAB [Suspect]
     Active Substance: VEDOLIZUMAB
     Dosage: 300 MILLIGRAM
     Route: 042
  3. VEDOLIZUMAB [Suspect]
     Active Substance: VEDOLIZUMAB
     Dosage: 300 MILLIGRAM
     Route: 042
  4. VEDOLIZUMAB [Suspect]
     Active Substance: VEDOLIZUMAB
     Dosage: 300 MILLIGRAM
     Route: 042
  5. VEDOLIZUMAB [Suspect]
     Active Substance: VEDOLIZUMAB
     Dosage: 300 MILLIGRAM
     Route: 042
  6. VEDOLIZUMAB [Suspect]
     Active Substance: VEDOLIZUMAB
     Dosage: 300 MILLIGRAM
     Route: 042
  7. MODERNA COVID-19 VACCINE [Suspect]
     Active Substance: ELASOMERAN
     Indication: COVID-19 immunisation
     Dosage: UNK
     Route: 065
     Dates: start: 20210407
  8. DILAUDID [Suspect]
     Active Substance: HYDROMORPHONE HYDROCHLORIDE
     Indication: Product used for unknown indication
     Dosage: UNK
     Route: 065
  9. PREDNISONE [Concomitant]
     Active Substance: PREDNISONE
     Dosage: UNK

REACTIONS (18)
  - Urinary retention [Unknown]
  - Abdominal hernia obstructive [Unknown]
  - Weight increased [Unknown]
  - Weight decreased [Unknown]
  - Diarrhoea [Unknown]
  - Abdominal pain [Unknown]
  - Peripheral swelling [Unknown]
  - Condition aggravated [Unknown]
  - Urinary tract infection [Unknown]
  - Foot fracture [Unknown]
  - Asthma [Unknown]
  - Blood pressure decreased [Unknown]
  - Stoma site pain [Unknown]
  - Oedema peripheral [Unknown]
  - Chest pain [Unknown]
  - Pyrexia [Unknown]
  - Pain in extremity [Unknown]
  - Nausea [Unknown]

NARRATIVE: CASE EVENT DATE: 20210101
